FAERS Safety Report 4603362-5 (Version None)
Quarter: 2005Q1

REPORT INFORMATION
  Report Type: 
  Country: None (occurrence: None)
  Receive Date: 20050308
  Receipt Date: 20050227
  Transmission Date: 20050727
  Serious: Yes (Hospitalization)
  Sender: FDA-Public Use
  Company Number: 2005037799

PATIENT
  Age: 69 Year
  Sex: Male
  Weight: 100 kg

DRUGS (6)
  1. VALDECOXIB [Suspect]
     Indication: MUSCULOSKELETAL PAIN
     Dosage: 40 MG (40 MG, 1 IN 1 D), ORAL
     Route: 048
     Dates: start: 20050225, end: 20050225
  2. AMLODIPINE [Concomitant]
  3. DOXAZOSIN MESYLATE [Concomitant]
  4. METFORMIN HCL [Concomitant]
  5. TRIMETAZIDINE (TRIMETAZIDINE) [Concomitant]
  6. LATANOPROST [Concomitant]

REACTIONS (2)
  - OEDEMA PERIPHERAL [None]
  - STEVENS-JOHNSON SYNDROME [None]
